FAERS Safety Report 11540483 (Version 1)
Quarter: 2015Q3

REPORT INFORMATION
  Report Type: Spontaneous
  Country: US (occurrence: US)
  Receive Date: 20150923
  Receipt Date: 20150923
  Transmission Date: 20151125
  Serious: No
  Sender: FDA-Public Use
  Company Number: US-BEH-2015047753

PATIENT
  Sex: Female
  Weight: 79 kg

DRUGS (44)
  1. ZEGERID [Concomitant]
     Active Substance: OMEPRAZOLE\SODIUM BICARBONATE
  2. RANITIDINE [Concomitant]
     Active Substance: RANITIDINE\RANITIDINE HYDROCHLORIDE
  3. VALIUM [Concomitant]
     Active Substance: DIAZEPAM
  4. DHEA [Concomitant]
     Active Substance: PRASTERONE
  5. CRANBERRY. [Concomitant]
     Active Substance: CRANBERRY
  6. AMITRIPTYLINE [Concomitant]
     Active Substance: AMITRIPTYLINE
  7. ZITHROMAX [Concomitant]
     Active Substance: AZITHROMYCIN DIHYDRATE
  8. RELPAX [Concomitant]
     Active Substance: ELETRIPTAN HYDROBROMIDE
  9. NEXIUM [Concomitant]
     Active Substance: ESOMEPRAZOLE MAGNESIUM
  10. MECLIZINE [Concomitant]
     Active Substance: MECLIZINE\MECLIZINE HYDROCHLORIDE
  11. XYLOCAINE [Concomitant]
     Active Substance: LIDOCAINE HYDROCHLORIDE
  12. ALBUTEROL. [Concomitant]
     Active Substance: ALBUTEROL
  13. FROVA [Concomitant]
     Active Substance: FROVATRIPTAN SUCCINATE
  14. MUCINEX [Concomitant]
     Active Substance: GUAIFENESIN
  15. TIZANIDINE. [Concomitant]
     Active Substance: TIZANIDINE
  16. IBUPROFEN. [Concomitant]
     Active Substance: IBUPROFEN
  17. CYANOCOBALAMIN. [Concomitant]
     Active Substance: CYANOCOBALAMIN
  18. MARINOL [Concomitant]
     Active Substance: DRONABINOL
  19. BUTORPHANOL [Concomitant]
     Active Substance: BUTORPHANOL
  20. CITALOPRAM [Concomitant]
     Active Substance: CITALOPRAM HYDROBROMIDE
  21. CEFTIN [Concomitant]
     Active Substance: CEFUROXIME AXETIL
  22. BACLOFEN. [Concomitant]
     Active Substance: BACLOFEN
  23. DRONABINOL. [Concomitant]
     Active Substance: DRONABINOL
  24. NEURONTIN [Concomitant]
     Active Substance: GABAPENTIN
  25. MIRALAX [Concomitant]
     Active Substance: POLYETHYLENE GLYCOL 3350
  26. BENICAR [Concomitant]
     Active Substance: OLMESARTAN MEDOXOMIL
  27. SINGULAIR [Concomitant]
     Active Substance: MONTELUKAST SODIUM
  28. TEGRETOL [Concomitant]
     Active Substance: CARBAMAZEPINE
  29. SONATA [Concomitant]
     Active Substance: ZALEPLON
  30. ATIVAN [Concomitant]
     Active Substance: LORAZEPAM
  31. PRIVIGEN [Suspect]
     Active Substance: HUMAN IMMUNOGLOBULIN G
     Route: 042
  32. EFFEXOR [Concomitant]
     Active Substance: VENLAFAXINE HYDROCHLORIDE
  33. PROMETHAZINE [Concomitant]
     Active Substance: PROMETHAZINE\PROMETHAZINE HYDROCHLORIDE
  34. NYSTATIN. [Concomitant]
     Active Substance: NYSTATIN
  35. TOPAMAX [Concomitant]
     Active Substance: TOPIRAMATE
  36. MELATONIN [Concomitant]
     Active Substance: MELATONIN
  37. MORPHINE [Concomitant]
     Active Substance: MORPHINE
  38. LYRICA [Concomitant]
     Active Substance: PREGABALIN
  39. PRIVIGEN [Suspect]
     Active Substance: HUMAN IMMUNOGLOBULIN G
     Indication: IMMUNODEFICIENCY COMMON VARIABLE
     Route: 042
  40. MAALOX ANTACID [Concomitant]
     Active Substance: ALUMINUM HYDROXIDE\DIMETHICONE\MAGNESIUM HYDROXIDE
  41. TRAMADOL. [Concomitant]
     Active Substance: TRAMADOL
  42. CHLORPROMAZINE. [Concomitant]
     Active Substance: CHLORPROMAZINE
  43. ZOFRAN [Concomitant]
     Active Substance: ONDANSETRON HYDROCHLORIDE
  44. NAMENDA [Concomitant]
     Active Substance: MEMANTINE HYDROCHLORIDE

REACTIONS (1)
  - Infection [Unknown]
